FAERS Safety Report 19828621 (Version 1)
Quarter: 2021Q3

REPORT INFORMATION
  Report Type: Spontaneous
  Country: US (occurrence: US)
  Receive Date: 20210914
  Receipt Date: 20210914
  Transmission Date: 20211014
  Serious: No
  Sender: FDA-Public Use
  Company Number: US-TEVA-2021-US-1950922

PATIENT
  Sex: Female

DRUGS (1)
  1. TRI?LO?SPRINTEC [Suspect]
     Active Substance: ETHINYL ESTRADIOL\NORGESTIMATE
     Indication: SKIN DISORDER
     Route: 065

REACTIONS (4)
  - Product prescribing error [Unknown]
  - Rash [Recovered/Resolved]
  - Product substitution issue [Unknown]
  - Product use in unapproved indication [Unknown]
